FAERS Safety Report 11405349 (Version 1)
Quarter: 2015Q3

REPORT INFORMATION
  Report Type: Report from Study
  Country: JP (occurrence: JP)
  Receive Date: 20150821
  Receipt Date: 20150821
  Transmission Date: 20151125
  Serious: Yes (Other)
  Sender: FDA-Public Use
  Company Number: JP-OTSUKA-2015_007683

PATIENT

DRUGS (10)
  1. TOLVAPTAN [Suspect]
     Active Substance: TOLVAPTAN
     Indication: CONGENITAL CYSTIC KIDNEY DISEASE
     Dosage: 60 MG/DAY
     Route: 048
     Dates: start: 20141210, end: 20141222
  2. LASIX M [Concomitant]
     Active Substance: FUROSEMIDE
     Dosage: 80 MG/DAY
     Route: 048
     Dates: start: 20141222, end: 20150104
  3. URSO S [Concomitant]
     Indication: PRODUCT USED FOR UNKNOWN INDICATION
     Dosage: 600 MG/DAY
     Route: 048
  4. BLOPRESS [Concomitant]
     Active Substance: CANDESARTAN CILEXETIL
     Indication: PRODUCT USED FOR UNKNOWN INDICATION
     Dosage: 8 MG/DAY
     Route: 048
  5. LASIX M [Concomitant]
     Active Substance: FUROSEMIDE
     Indication: PRODUCT USED FOR UNKNOWN INDICATION
     Dosage: 80 MG/DAY
     Route: 048
     Dates: end: 20141209
  6. LASIX M [Concomitant]
     Active Substance: FUROSEMIDE
     Dosage: 160 MG/DAY
     Route: 048
     Dates: start: 20150105, end: 20150118
  7. TOLVAPTAN [Suspect]
     Active Substance: TOLVAPTAN
     Dosage: 90 MG/DAY
     Route: 048
     Dates: start: 20141223, end: 20150119
  8. ATELEC [Concomitant]
     Active Substance: CILNIDIPINE
     Indication: PRODUCT USED FOR UNKNOWN INDICATION
     Dosage: 20 MG/DAY
     Route: 048
     Dates: end: 20150426
  9. LASIX M [Concomitant]
     Active Substance: FUROSEMIDE
     Dosage: 80 MG/DAY
     Route: 048
     Dates: start: 20150119
  10. ZYLORIC [Concomitant]
     Active Substance: ALLOPURINOL
     Indication: PRODUCT USED FOR UNKNOWN INDICATION
     Dosage: 100 MG/DAY
     Route: 048

REACTIONS (6)
  - Hypocalcaemia [Not Recovered/Not Resolved]
  - Hypertension [Not Recovered/Not Resolved]
  - Nephrogenic anaemia [Recovering/Resolving]
  - Renal impairment [Recovering/Resolving]
  - Rhinitis allergic [Recovering/Resolving]
  - Oedema due to renal disease [Recovering/Resolving]

NARRATIVE: CASE EVENT DATE: 20141229
